FAERS Safety Report 19919303 (Version 2)
Quarter: 2021Q4

REPORT INFORMATION
  Report Type: Report from Study
  Country: HN (occurrence: HN)
  Receive Date: 20211004
  Receipt Date: 20211020
  Transmission Date: 20220303
  Serious: Yes (Hospitalization)
  Sender: FDA-Public Use
  Company Number: NVSC2021HN222099

PATIENT
  Age: 73 Year
  Sex: Male
  Weight: 79.37 kg

DRUGS (6)
  1. DIOVAN [Suspect]
     Active Substance: VALSARTAN
     Indication: Hypertension
     Dosage: 320 MG (APPROXIMATELY 15 YEARS AGO)
     Route: 065
     Dates: end: 20210617
  2. DIOVAN [Suspect]
     Active Substance: VALSARTAN
     Dosage: 320 MG, QD ONLY IN THE MORNING (APPROXIMATELY 50 YEARS AGO)
     Route: 065
  3. EXFORGE HCT [Suspect]
     Active Substance: AMLODIPINE BESYLATE\HYDROCHLOROTHIAZIDE\VALSARTAN
     Indication: Hypertension
     Dosage: 1 DF, QD ONLY IN THE MORNING
     Route: 065
     Dates: start: 20210617
  4. ATENOLOL [Concomitant]
     Active Substance: ATENOLOL
     Indication: Hypertension
     Dosage: 1 DF, QD (15 YEARS AGO)
     Route: 065
  5. GLISULIN [Concomitant]
     Indication: Diabetes mellitus
     Dosage: 1 DF IN THE MORNING, HALF A TABLET AT NOON AND HALF A TABLET IN THE AFTERNOON
     Route: 065
     Dates: end: 202105
  6. INSULIN NOS [Concomitant]
     Active Substance: INSULIN NOS
     Indication: Diabetes mellitus
     Dosage: 1 DF IN THE MORNING OF 30 UNITS AND IN THE AFTERNOON OF 15 UNITS
     Route: 065
     Dates: start: 20210611

REACTIONS (6)
  - COVID-19 [Recovered/Resolved]
  - Fatigue [Recovered/Resolved]
  - Anosmia [Recovered/Resolved]
  - Ageusia [Recovered/Resolved]
  - Oxygen saturation decreased [Recovered/Resolved]
  - Asthenia [Unknown]

NARRATIVE: CASE EVENT DATE: 20210501
